FAERS Safety Report 10666029 (Version 1)
Quarter: 2014Q4

REPORT INFORMATION
  Report Type: Spontaneous
  Country: US (occurrence: US)
  Receive Date: 20141219
  Receipt Date: 20141219
  Transmission Date: 20150529
  Serious: Yes (Hospitalization, Other)
  Sender: FDA-Public Use
  Company Number: US-TAKEDA-2014TUS014204

PATIENT
  Age: 42 Year
  Sex: Female
  Weight: 77.98 kg

DRUGS (10)
  1. ARMOUR THYROID [Concomitant]
     Active Substance: THYROID, PORCINE\THYROID, UNSPECIFIED
     Indication: HYPOTHYROIDISM
     Dosage: UNK
     Route: 048
     Dates: start: 2012
  2. PROBIOTIC [Concomitant]
     Active Substance: PROBIOTICS NOS
     Indication: IRRITABLE BOWEL SYNDROME
     Dosage: UNK
     Route: 048
  3. PROTONIX [Concomitant]
     Active Substance: PANTOPRAZOLE SODIUM
     Indication: GASTROOESOPHAGEAL REFLUX DISEASE
     Dosage: UNK
     Route: 048
  4. BRINTELLIX [Suspect]
     Active Substance: VORTIOXETINE HYDROBROMIDE
     Indication: MAJOR DEPRESSION
     Dosage: 10 MG, AT BED TIME
     Route: 048
     Dates: start: 201408
  5. COLACE [Concomitant]
     Active Substance: DOCUSATE SODIUM
     Indication: CONSTIPATION PROPHYLAXIS
     Dosage: UNK
     Route: 048
     Dates: end: 201410
  6. PRAVACHOL [Concomitant]
     Active Substance: PRAVASTATIN SODIUM
     Indication: BLOOD CHOLESTEROL
     Dosage: UNK
     Route: 048
     Dates: start: 20141008
  7. ATENOLOL. [Concomitant]
     Active Substance: ATENOLOL
     Indication: LONG QT SYNDROME
     Dosage: UNK
     Route: 048
     Dates: start: 1990
  8. SENNA [Concomitant]
     Active Substance: SENNA LEAF\SENNOSIDES\SENNOSIDES A AND B
     Indication: CONSTIPATION PROPHYLAXIS
     Dosage: UNK
     Route: 048
     Dates: start: 20141025
  9. ASPIRIN. [Concomitant]
     Active Substance: ASPIRIN
     Indication: CEREBROVASCULAR ACCIDENT PROPHYLAXIS
     Dosage: UNK
     Route: 048
     Dates: start: 20141008
  10. PLAVIX [Concomitant]
     Active Substance: CLOPIDOGREL BISULFATE
     Indication: CEREBROVASCULAR ACCIDENT PROPHYLAXIS
     Dosage: UNK
     Route: 048
     Dates: start: 20141212

REACTIONS (5)
  - Condition aggravated [Not Recovered/Not Resolved]
  - Amnesia [Not Recovered/Not Resolved]
  - Cerebrovascular accident [Recovering/Resolving]
  - Nausea [Not Recovered/Not Resolved]
  - Headache [Recovered/Resolved]

NARRATIVE: CASE EVENT DATE: 20141008
